FAERS Safety Report 23167096 (Version 1)
Quarter: 2023Q4

REPORT INFORMATION
  Report Type: Spontaneous
  Country: ID (occurrence: None)
  Receive Date: 20231109
  Receipt Date: 20231109
  Transmission Date: 20240110
  Serious: Yes (Other)
  Sender: FDA-Public Use
  Company Number: 2023A251689

PATIENT
  Age: 45 Year
  Sex: Male

DRUGS (3)
  1. TAGRISSO [Suspect]
     Active Substance: OSIMERTINIB
     Indication: Lung adenocarcinoma stage IV
     Route: 048
  2. PEMETREXED [Concomitant]
     Active Substance: PEMETREXED
  3. LORLAK [Concomitant]

REACTIONS (2)
  - Malignant neoplasm progression [Unknown]
  - Off label use [Unknown]
